FAERS Safety Report 5405579-9 (Version None)
Quarter: 2007Q3

REPORT INFORMATION
  Report Type: 
  Country: None (occurrence: None)
  Receive Date: 20070803
  Receipt Date: 20070726
  Transmission Date: 20080115
  Serious: Yes (Hospitalization)
  Sender: FDA-Public Use
  Company Number: FR-ABBOTT-07P-056-0375968-00

PATIENT
  Sex: Female
  Weight: 36 kg

DRUGS (3)
  1. ZECLAR SUSPENSION [Suspect]
     Indication: ASTHENIA
     Route: 048
     Dates: start: 20070622, end: 20070626
  2. TIAPROFENIC ACID [Suspect]
     Indication: ASTHENIA
     Route: 048
     Dates: start: 20070622, end: 20070626
  3. ALFA-AMYLASE [Suspect]
     Indication: ASTHENIA
     Route: 048
     Dates: start: 20070622, end: 20070626

REACTIONS (8)
  - ARTHRALGIA [None]
  - CHEILITIS [None]
  - LIP OEDEMA [None]
  - ORAL PAIN [None]
  - PAIN [None]
  - PHARYNGOLARYNGEAL PAIN [None]
  - PURPURA [None]
  - VASCULITIS [None]
